FAERS Safety Report 6422507-8 (Version None)
Quarter: 2009Q4

REPORT INFORMATION
  Report Type: 
  Country: None (occurrence: None)
  Receive Date: 20091102
  Receipt Date: 20091026
  Transmission Date: 20100525
  Serious: Yes (Other)
  Sender: FDA-Public Use
  Company Number: US-ASTRAZENECA-2007UW16861

PATIENT
  Age: 11748 Day
  Sex: Female
  Weight: 112.9 kg

DRUGS (12)
  1. SEROQUEL [Suspect]
     Indication: BIPOLAR DISORDER
     Route: 048
     Dates: start: 20050713
  2. SEROQUEL [Suspect]
     Indication: DEPRESSION
     Route: 048
     Dates: start: 20050713
  3. SEROQUEL [Suspect]
     Dosage: 200 MG - 400 MG
     Route: 048
     Dates: start: 20050801, end: 20060801
  4. SEROQUEL [Suspect]
     Dosage: 200 MG - 400 MG
     Route: 048
     Dates: start: 20050801, end: 20060801
  5. DEPAKOTE ER [Concomitant]
     Dates: start: 20070101
  6. DEPAKOTE ER [Concomitant]
     Dates: start: 20050407
  7. LITHIUM [Concomitant]
     Dates: start: 20070101
  8. WELLBUTRIN [Concomitant]
     Dates: start: 20031105
  9. ZOLOFT [Concomitant]
     Dates: start: 20050618
  10. LEXAPRO [Concomitant]
     Dates: start: 20050407
  11. ZITHROMAX [Concomitant]
     Dates: start: 20050902
  12. TEMAZEPAM [Concomitant]
     Dates: start: 20060405

REACTIONS (3)
  - BLOOD CHOLESTEROL INCREASED [None]
  - DIABETES MELLITUS [None]
  - GESTATIONAL DIABETES [None]
